FAERS Safety Report 5337016-7 (Version None)
Quarter: 2007Q2

REPORT INFORMATION
  Report Type: 
  Country: None (occurrence: None)
  Receive Date: 20070523
  Receipt Date: 20070510
  Transmission Date: 20071010
  Serious: Yes (Hospitalization)
  Sender: FDA-Public Use
  Company Number: GXKR2007GB04202

PATIENT
  Age: 46 Year
  Sex: Female

DRUGS (1)
  1. CLONIDINE [Suspect]
     Dosage: 100 UG, BID, ORAL
     Route: 048
     Dates: start: 20070411, end: 20070424

REACTIONS (7)
  - BLOOD PRESSURE INCREASED [None]
  - CONFUSIONAL STATE [None]
  - CONVULSION [None]
  - HEART RATE INCREASED [None]
  - LETHARGY [None]
  - NEUTROPHIL COUNT ABNORMAL [None]
  - ROAD TRAFFIC ACCIDENT [None]
